FAERS Safety Report 7735088-3 (Version None)
Quarter: 2011Q3

REPORT INFORMATION
  Report Type: 
  Country: None (occurrence: None)
  Receive Date: 20110907
  Receipt Date: 20110829
  Transmission Date: 20111222
  Serious: Yes (Other)
  Sender: FDA-Public Use
  Company Number: US-ELI_LILLY_AND_COMPANY-US201106003817

PATIENT
  Sex: Female
  Weight: 60 kg

DRUGS (6)
  1. ASPIRIN [Concomitant]
  2. ADCIRCA [Suspect]
     Dosage: 40 MG, QD
     Route: 048
     Dates: start: 20110607, end: 20110610
  3. VITAMIN D [Concomitant]
  4. SYNTHROID [Concomitant]
  5. DILTIAZEM [Concomitant]
  6. RESTASIS [Concomitant]
     Dosage: UNK
     Route: 047

REACTIONS (1)
  - ATRIAL FIBRILLATION [None]
